FAERS Safety Report 23992307 (Version 3)
Quarter: 2025Q4

REPORT INFORMATION
  Report Type: Spontaneous
  Country: US (occurrence: US)
  Receive Date: 20240620
  Receipt Date: 20251121
  Transmission Date: 20260117
  Serious: Yes (Other)
  Sender: NOVO NORDISK
  Company Number: US-NOVOPROD-1240638

PATIENT
  Age: 74 Year
  Sex: Female

DRUGS (1)
  1. OZEMPIC [Suspect]
     Active Substance: SEMAGLUTIDE
     Indication: Obesity
     Dosage: 2.5 MG, QW
     Route: 058
     Dates: start: 202401

REACTIONS (7)
  - Cerebrovascular accident [Recovered/Resolved]
  - Parathyroid tumour [Unknown]
  - Aortic valve replacement [Unknown]
  - Alopecia [Not Recovered/Not Resolved]
  - Ill-defined disorder [Unknown]
  - Product use in unapproved indication [Unknown]
  - Product use issue [Unknown]

NARRATIVE: CASE EVENT DATE: 20250421
